FAERS Safety Report 11647241 (Version 1)
Quarter: 2015Q4

REPORT INFORMATION
  Report Type: Spontaneous
  Country: US (occurrence: US)
  Receive Date: 20151021
  Receipt Date: 20151021
  Transmission Date: 20160304
  Serious: No
  Sender: FDA-Public Use
  Company Number: US-ASTRAZENECA-2015SE99299

PATIENT
  Sex: Male

DRUGS (2)
  1. FARXIGA [Suspect]
     Active Substance: DAPAGLIFLOZIN PROPANEDIOL
     Indication: TYPE 2 DIABETES MELLITUS
     Route: 048
     Dates: start: 201509
  2. INVOKANA [Suspect]
     Active Substance: CANAGLIFLOZIN
     Dates: start: 201509

REACTIONS (1)
  - Epididymitis [Unknown]

NARRATIVE: CASE EVENT DATE: 20151012
